FAERS Safety Report 14014619 (Version 1)
Quarter: 2017Q3

REPORT INFORMATION
  Report Type: Spontaneous
  Country: DE (occurrence: DE)
  Receive Date: 20170927
  Receipt Date: 20170927
  Transmission Date: 20171128
  Serious: Yes (Hospitalization, Other)
  Sender: FDA-Public Use
  Company Number: DE-BRISTOL-MYERS SQUIBB COMPANY-BMS-2017-076861

PATIENT
  Sex: Female
  Weight: 46 kg

DRUGS (1)
  1. OPDIVO [Suspect]
     Active Substance: NIVOLUMAB
     Indication: SQUAMOUS CELL CARCINOMA
     Dosage: UNAV.
     Route: 065
     Dates: start: 201508, end: 201511

REACTIONS (5)
  - Hypothyroidism [Recovered/Resolved]
  - Renal failure [Recovered/Resolved]
  - Malignant neoplasm progression [Unknown]
  - Stomatitis [Recovered/Resolved]
  - Dehydration [Recovered/Resolved]
